FAERS Safety Report 14699613 (Version 5)
Quarter: 2019Q2

REPORT INFORMATION
  Report Type: Spontaneous
  Country: US (occurrence: US)
  Receive Date: 20180330
  Receipt Date: 20190618
  Transmission Date: 20190711
  Serious: Yes (Other)
  Sender: FDA-Public Use
  Company Number: US-GLAXOSMITHKLINE-US2018GSK054296

PATIENT
  Sex: Female

DRUGS (5)
  1. PREVACID [Suspect]
     Active Substance: LANSOPRAZOLE
     Indication: GASTROOESOPHAGEAL REFLUX DISEASE
     Dosage: UNK
     Route: 065
  2. PREVACID [Suspect]
     Active Substance: LANSOPRAZOLE
     Indication: GASTROOESOPHAGEAL REFLUX DISEASE
     Dosage: UNK
     Route: 065
  3. OMEPRAZOLE. [Suspect]
     Active Substance: OMEPRAZOLE
     Dosage: 40 MG, QD
     Route: 048
  4. OMEPRAZOLE. [Suspect]
     Active Substance: OMEPRAZOLE
     Indication: GASTROOESOPHAGEAL REFLUX DISEASE
     Dosage: 20 MG, QD
     Route: 048
  5. OMEPRAZOLE. [Suspect]
     Active Substance: OMEPRAZOLE
     Indication: PRODUCT USED FOR UNKNOWN INDICATION
     Dosage: 20 MG, QD
     Route: 065

REACTIONS (16)
  - Renal failure [Unknown]
  - Renal disorder [Unknown]
  - Nephrectomy [Unknown]
  - Renal impairment [Unknown]
  - Micturition urgency [Unknown]
  - Dysuria [Unknown]
  - Nephrosclerosis [Unknown]
  - Pollakiuria [Unknown]
  - Bladder pain [Unknown]
  - Urinary incontinence [Unknown]
  - Nocturia [Unknown]
  - Diabetic nephropathy [Unknown]
  - Polyuria [Unknown]
  - Chronic kidney disease [Unknown]
  - Kidney small [Unknown]
  - Nephropathy [Unknown]
